FAERS Safety Report 8042474-3 (Version None)
Quarter: 2012Q1

REPORT INFORMATION
  Report Type: 
  Country: None (occurrence: None)
  Receive Date: 20120112
  Receipt Date: 20120109
  Transmission Date: 20120608
  Serious: No
  Sender: FDA-Public Use
  Company Number: US-PFIZER INC-2012006868

PATIENT
  Sex: Female
  Weight: 62.132 kg

DRUGS (3)
  1. PRISTIQ [Suspect]
     Indication: DEPRESSION
     Dosage: 50 MG, 1X/DAY
     Route: 048
  2. ACETAMINOPHEN [Concomitant]
     Indication: MUSCLE SPASMS
  3. ACETAMINOPHEN [Concomitant]
     Indication: HEADACHE
     Dosage: UNK

REACTIONS (3)
  - ANXIETY [None]
  - TREMOR [None]
  - NERVOUSNESS [None]
